FAERS Safety Report 8517702-8 (Version None)
Quarter: 2012Q3

REPORT INFORMATION
  Report Type: 
  Country: None (occurrence: None)
  Receive Date: 20120712
  Receipt Date: 20120712
  Transmission Date: 20120928
  Serious: Yes (Other)
  Sender: FDA-Public Use
  Company Number: None

PATIENT
  Sex: Female
  Weight: 52.6173 kg

DRUGS (1)
  1. OXYCODONE 2.5/APAP 500 [Suspect]
     Indication: FIBROMYALGIA
     Dosage: PO 7.5/325 TID/PRN

REACTIONS (4)
  - PRURITUS [None]
  - NAUSEA [None]
  - DIZZINESS [None]
  - VOMITING [None]
